FAERS Safety Report 17662607 (Version 2)
Quarter: 2020Q2

REPORT INFORMATION
  Report Type: Spontaneous
  Country: GB (occurrence: GB)
  Receive Date: 20200413
  Receipt Date: 20200526
  Transmission Date: 20200713
  Serious: Yes (Hospitalization, Other)
  Sender: FDA-Public Use
  Company Number: GB-MYLANLABS-2020M1037307

PATIENT
  Age: 41 Year
  Sex: Male
  Weight: 87.2 kg

DRUGS (1)
  1. CLOZARIL [Suspect]
     Active Substance: CLOZAPINE
     Indication: SCHIZOPHRENIA
     Dosage: 175 MILLIGRAM, QD
     Route: 048
     Dates: start: 20191002, end: 20200407

REACTIONS (8)
  - Salivary hypersecretion [Unknown]
  - Coronavirus infection [Recovered/Resolved]
  - Sinus tachycardia [Unknown]
  - Constipation [Unknown]
  - Blood pressure decreased [Unknown]
  - Weight increased [Unknown]
  - Dehydration [Unknown]
  - Drug level increased [Unknown]

NARRATIVE: CASE EVENT DATE: 202001
